FAERS Safety Report 4753290-X (Version None)
Quarter: 2005Q3

REPORT INFORMATION
  Report Type: 
  Country: None (occurrence: None)
  Receive Date: 20050824
  Receipt Date: 20050818
  Transmission Date: 20060218
  Serious: Yes (Hospitalization, Other)
  Sender: FDA-Public Use
  Company Number: 2005117199

PATIENT
  Age: 49 Year
  Sex: Male
  Weight: 106.5953 kg

DRUGS (7)
  1. LIPITOR [Suspect]
     Indication: BLOOD CHOLESTEROL INCREASED
     Dosage: 40 MG (40 MG, 1 IN 1 D),
     Dates: start: 20000101
  2. ACCUPRIL [Suspect]
     Indication: ILL-DEFINED DISORDER
     Dosage: 15 MG (1 IN 1 D),
     Dates: start: 20000101
  3. VIAGRA [Suspect]
     Indication: ERECTILE DYSFUNCTION
     Dosage: 100 MG (100 MG, AS NECESSARY),
     Dates: start: 20000101
  4. BUMEX [Concomitant]
  5. HUMALOG [Concomitant]
  6. LANTUS [Concomitant]
  7. SYNTHROID [Concomitant]

REACTIONS (4)
  - BLOOD PRESSURE DECREASED [None]
  - CARDIAC ARREST [None]
  - CORONARY ARTERY OCCLUSION [None]
  - DIZZINESS [None]
